FAERS Safety Report 18776525 (Version 1)
Quarter: 2021Q1

REPORT INFORMATION
  Report Type: Spontaneous
  Country: JP (occurrence: JP)
  Receive Date: 20210123
  Receipt Date: 20210123
  Transmission Date: 20210419
  Serious: Yes (Hospitalization, Other)
  Sender: FDA-Public Use
  Company Number: JP-LEADINGPHARMA-JP-2021LEALIT00009

PATIENT
  Age: 89 Year
  Sex: Male

DRUGS (2)
  1. FUROSEMIDE TABLETS USP [Suspect]
     Active Substance: FUROSEMIDE
     Indication: OEDEMA
  2. FUROSEMIDE TABLETS USP [Suspect]
     Active Substance: FUROSEMIDE
     Indication: CARDIAC FAILURE CHRONIC
     Route: 065
     Dates: start: 201803

REACTIONS (2)
  - Altered state of consciousness [Recovering/Resolving]
  - Hyponatraemia [Recovered/Resolved]
